FAERS Safety Report 5509828-8 (Version None)
Quarter: 2007Q4

REPORT INFORMATION
  Report Type: 
  Country: None (occurrence: None)
  Receive Date: 20071030
  Receipt Date: 20070214
  Transmission Date: 20080405
  Serious: Yes (Life-Threatening, Hospitalization)
  Sender: FDA-Public Use
  Company Number: HQWYE930216FEB07

PATIENT
  Sex: Female
  Weight: 55.84 kg

DRUGS (1)
  1. PREMARIN [Suspect]
     Dosage: 0.625 MG 1X PER 1 DAY
     Dates: start: 19990101, end: 20070213

REACTIONS (1)
  - CEREBROVASCULAR ACCIDENT [None]
